FAERS Safety Report 8520590-7 (Version None)
Quarter: 2012Q3

REPORT INFORMATION
  Report Type: 
  Country: None (occurrence: None)
  Receive Date: 20120719
  Receipt Date: 20120713
  Transmission Date: 20120928
  Serious: Yes (Hospitalization)
  Sender: FDA-Public Use
  Company Number: NL-PFIZER INC-2012170074

PATIENT
  Sex: Female

DRUGS (8)
  1. LYRICA [Suspect]
     Dosage: UNK
     Dates: start: 20120612
  2. LORAZEPAM [Concomitant]
  3. OLANZAPINE [Concomitant]
  4. OXAZEPAM [Concomitant]
  5. THYROX [Concomitant]
  6. ALENDRONIC ACID [Concomitant]
     Dosage: UNK
  7. VITAMIN TAB [Concomitant]
  8. PANADENE [Concomitant]

REACTIONS (2)
  - TREMOR [None]
  - EPILEPSY [None]
